FAERS Safety Report 5260166-0 (Version None)
Quarter: 2007Q1

REPORT INFORMATION
  Report Type: 
  Country: None (occurrence: None)
  Receive Date: 20070309
  Receipt Date: 20060413
  Transmission Date: 20070707
  Serious: No
  Sender: FDA-Public Use
  Company Number: US-GLAXOSMITHKLINE-A0601534A

PATIENT
  Age: 43 Year
  Sex: Female
  Weight: 47 kg

DRUGS (1)
  1. NICORETTE (MINT) [Suspect]
     Dates: start: 20060408, end: 20060410

REACTIONS (3)
  - CHEST DISCOMFORT [None]
  - CONSTIPATION [None]
  - TENSION [None]
